FAERS Safety Report 5005026-5 (Version None)
Quarter: 2006Q2

REPORT INFORMATION
  Report Type: 
  Country: None (occurrence: None)
  Receive Date: 20060512
  Receipt Date: 20060502
  Transmission Date: 20061013
  Serious: Yes (Hospitalization)
  Sender: FDA-Public Use
  Company Number: 2006060685

PATIENT
  Age: 77 Year
  Sex: Female
  Weight: 65 kg

DRUGS (9)
  1. SOLU-MEDROL [Suspect]
     Indication: ILL-DEFINED DISORDER
     Dosage: 20MG/2ML UNIT DOSE, 60MG TOTAL
     Route: 042
     Dates: start: 20060307, end: 20060307
  2. PILTICAN (ALIZAPRIDE HYDROCHLORIDE) [Suspect]
     Indication: ILL-DEFINED DISORDER
     Dosage: 50 MG (INTERVAL: EVERY DAY), INTRAVENOUS
     Route: 042
     Dates: start: 20060307, end: 20060307
  3. ELOXATIN [Suspect]
     Indication: BREAST CANCER
     Dosage: 90 MG (INTERVAL: EVERY DAY), INTRAVENOUS
     Route: 042
     Dates: start: 20060307, end: 20060307
  4. ZOFRAN [Suspect]
     Indication: ILL-DEFINED DISORDER
     Dosage: 8 MG (2 MG, INTERVAL: EVERY DAY), INTRAVENOUS
     Route: 042
     Dates: start: 20060307, end: 20060307
  5. GEMZAR [Suspect]
     Indication: BREAST CANCER
     Dosage: 1000 MG (1000 MG, INTERVAL: EVERY DAY), INTRAVENOUS
     Route: 042
     Dates: start: 20060307, end: 20060307
  6. SERMION (NICERGOLINE) [Concomitant]
  7. TRANXENE [Concomitant]
  8. DIOVENOR (DIOSMIN) [Concomitant]
  9. MAPROTILINE [Concomitant]

REACTIONS (4)
  - ASTHENIA [None]
  - BLOOD GLUCOSE INCREASED [None]
  - CONDITION AGGRAVATED [None]
  - THIRST [None]
